FAERS Safety Report 4592954-8 (Version None)
Quarter: 2005Q1

REPORT INFORMATION
  Report Type: 
  Country: None (occurrence: None)
  Receive Date: 20050228
  Receipt Date: 20050221
  Transmission Date: 20050727
  Serious: Yes (Life-Threatening)
  Sender: FDA-Public Use
  Company Number: ES-GLAXOSMITHKLINE-B0372971A

PATIENT
  Age: 40 Year
  Sex: Male
  Weight: 56 kg

DRUGS (5)
  1. EPIVIR [Suspect]
     Indication: ACQUIRED IMMUNODEFICIENCY SYNDROME
     Dosage: 300MG PER DAY
     Route: 048
     Dates: start: 20040517, end: 20040518
  2. EFAVIRENZ [Suspect]
     Indication: ACQUIRED IMMUNODEFICIENCY SYNDROME
     Dosage: 600MG PER DAY
     Route: 048
     Dates: start: 20040517, end: 20040518
  3. DIDANOSINE [Suspect]
     Indication: ACQUIRED IMMUNODEFICIENCY SYNDROME
     Dosage: 250MG PER DAY
     Route: 048
     Dates: start: 20040517, end: 20040518
  4. COMBIVIR [Concomitant]
     Dosage: 2TAB PER DAY
     Route: 048
  5. LOPINAVIR + RITONAVIR [Concomitant]
     Dosage: 6TAB PER DAY
     Route: 048

REACTIONS (4)
  - DIZZINESS [None]
  - HALLUCINATION [None]
  - PNEUMONIA [None]
  - RASH ERYTHEMATOUS [None]
